FAERS Safety Report 17009998 (Version 1)
Quarter: 2019Q4

REPORT INFORMATION
  Report Type: Spontaneous
  Country: US (occurrence: US)
  Receive Date: 20191107
  Receipt Date: 20191107
  Transmission Date: 20200122
  Serious: No
  Sender: FDA-Public Use
  Company Number: None

PATIENT
  Age: 44 Year
  Sex: Female
  Weight: 72 kg

DRUGS (9)
  1. BISOPROLOL FUMARATE. [Concomitant]
     Active Substance: BISOPROLOL FUMARATE
  2. METFORMIN [Concomitant]
     Active Substance: METFORMIN HYDROCHLORIDE
  3. PROAIR HFA [Concomitant]
     Active Substance: ALBUTEROL SULFATE
  4. TEMAZEPAM - SUBSTITUTED FOR RESTORIL [Suspect]
     Active Substance: TEMAZEPAM
     Indication: INSOMNIA
     Dosage: ?          QUANTITY:1 CAPSULE(S);?
     Route: 048
     Dates: start: 20191102, end: 20191106
  5. BACLOPHEN [Concomitant]
  6. URSODIOL. [Concomitant]
     Active Substance: URSODIOL
  7. GABAPENTIN. [Concomitant]
     Active Substance: GABAPENTIN
  8. SYMBICORT [Concomitant]
     Active Substance: BUDESONIDE\FORMOTEROL FUMARATE DIHYDRATE
  9. OXYCODONE [Concomitant]
     Active Substance: OXYCODONE

REACTIONS (1)
  - Somnambulism [None]

NARRATIVE: CASE EVENT DATE: 20191102
